FAERS Safety Report 24130734 (Version 1)
Quarter: 2024Q3

REPORT INFORMATION
  Report Type: Spontaneous
  Country: US (occurrence: US)
  Receive Date: 20240724
  Receipt Date: 20240724
  Transmission Date: 20241016
  Serious: No
  Sender: PHARMACOSMOS
  Company Number: US-NEBO-662877

PATIENT
  Sex: Female

DRUGS (1)
  1. MONOFERRIC [Suspect]
     Active Substance: FERRIC DERISOMALTOSE
     Indication: Product used for unknown indication
     Dates: start: 20240627

REACTIONS (2)
  - Dysuria [Unknown]
  - Rash [Unknown]

NARRATIVE: CASE EVENT DATE: 20240601
